FAERS Safety Report 5449819-9 (Version None)
Quarter: 2007Q3

REPORT INFORMATION
  Report Type: 
  Country: None (occurrence: None)
  Receive Date: 20070912
  Receipt Date: 20070903
  Transmission Date: 20080115
  Serious: Yes (Death)
  Sender: FDA-Public Use
  Company Number: NL-JNJFOC-20070403836

PATIENT

DRUGS (4)
  1. RISPERDAL CONSTA [Suspect]
     Indication: SCHIZOPHRENIA
     Route: 030
  2. ARTANE [Concomitant]
  3. TEMAZEPAMUM [Concomitant]
  4. DIAZEPAM [Concomitant]

REACTIONS (1)
  - DEATH [None]
